FAERS Safety Report 4438436-5 (Version None)
Quarter: 2004Q3

REPORT INFORMATION
  Report Type: 
  Country: None (occurrence: None)
  Receive Date: 20040831
  Receipt Date: 20040824
  Transmission Date: 20050211
  Serious: Yes (Other)
  Sender: FDA-Public Use
  Company Number: PHBS2004NO11152

PATIENT

DRUGS (1)
  1. RITALINA [Suspect]
     Route: 065
     Dates: start: 20040601

REACTIONS (3)
  - ASTHENIA [None]
  - MUSCLE FATIGUE [None]
  - WEIGHT DECREASED [None]
